FAERS Safety Report 12224418 (Version 1)
Quarter: 2016Q1

REPORT INFORMATION
  Report Type: Spontaneous
  Country: US (occurrence: US)
  Receive Date: 20160331
  Receipt Date: 20160331
  Transmission Date: 20160526
  Serious: No
  Sender: FDA-Public Use
  Company Number: US-ORION CORPORATION ORION PHARMA-ENT 2015-0039

PATIENT
  Age: 63 Year
  Sex: Male

DRUGS (3)
  1. ENTACAPONE TABLETS [Suspect]
     Active Substance: ENTACAPONE
     Dosage: STRENGTH: 200 MG
     Route: 048
     Dates: start: 201502
  2. CARBIDOPA. [Concomitant]
     Active Substance: CARBIDOPA
     Dosage: STRENGTH: 200 MG
     Route: 065
  3. ENTACAPONE TABLETS [Suspect]
     Active Substance: ENTACAPONE
     Indication: PARKINSON^S DISEASE
     Dosage: STRENGTH: 200 MG
     Route: 048

REACTIONS (2)
  - Product quality issue [Unknown]
  - Urticaria [Unknown]

NARRATIVE: CASE EVENT DATE: 201502
